FAERS Safety Report 5901578-9 (Version None)
Quarter: 2008Q3

REPORT INFORMATION
  Report Type: 
  Country: None (occurrence: None)
  Receive Date: 20080929
  Receipt Date: 20080926
  Transmission Date: 20090109
  Serious: Yes (Hospitalization)
  Sender: FDA-Public Use
  Company Number: GB-AVENTIS-200819101GDDC

PATIENT
  Age: 5 Year
  Sex: Female

DRUGS (10)
  1. TRIAMCINOLONE [Suspect]
     Dosage: DOSE: 1 DF,  2/17 MONTHS
     Dates: start: 20070224
  2. METHOTREXATE [Suspect]
     Route: 048
     Dates: start: 20070224
  3. ACYCLOVIR [Concomitant]
     Dates: start: 20051101
  4. DESLORATADINE [Concomitant]
     Dates: start: 20080401
  5. HYDROCORTISONE [Concomitant]
     Dosage: DOSE: 1%
     Dates: start: 20080401
  6. IRON [Concomitant]
     Dates: start: 20060301
  7. ACETAMINOPHEN [Concomitant]
     Dates: start: 20050201
  8. PREDNISOLONE [Concomitant]
     Dates: start: 20050401, end: 20060601
  9. PREDNISOLONE [Concomitant]
     Dates: start: 20061101
  10. CORTICOSTEROIDS [Concomitant]
     Dosage: DOSE: 2 DF
     Dates: start: 20050801

REACTIONS (2)
  - OFF LABEL USE [None]
  - URINARY TRACT INFECTION VIRAL [None]
